FAERS Safety Report 7720943-0 (Version None)
Quarter: 2011Q3

REPORT INFORMATION
  Report Type: 
  Country: None (occurrence: None)
  Receive Date: 20110830
  Receipt Date: 20110830
  Transmission Date: 20111222
  Serious: Yes (Disabling)
  Sender: FDA-Public Use
  Company Number: None

PATIENT
  Age: 62 Year
  Sex: Female

DRUGS (2)
  1. PAXIL [Suspect]
     Indication: ANXIETY
     Dosage: 1 TABLET IN THE MORNING DAILY
     Dates: start: 19970101
  2. PAROXETINE HCL [Suspect]
     Indication: DEPRESSION
     Dosage: TAKEN AT NIGHT PRIOR TO CHANGING TO DAY
     Dates: start: 20100101

REACTIONS (1)
  - LIVER FUNCTION TEST ABNORMAL [None]
